FAERS Safety Report 9170737 (Version 4)
Quarter: 2013Q3

REPORT INFORMATION
  Report Type: Spontaneous
  Country: PT (occurrence: None)
  Receive Date: 20130424
  Receipt Date: 20130821
  Transmission Date: 20140515
  Serious: Yes (Hospitalization, Disabling)
  Sender: FDA-Public Use
  Company Number: 2013P1002885

PATIENT
  Age: 94 Year
  Sex: Male

DRUGS (8)
  1. AMIODARONE [Suspect]
     Indication: TACHYARRHYTHMIA
     Route: 042
     Dates: start: 20130120, end: 20130122
  2. AMIODARONE [Suspect]
     Route: 042
     Dates: start: 20130120, end: 20130122
  3. ALPRAZOLAM [Concomitant]
  4. TROMALYT (ACETYLSALICYLIC ACID) (PROLONGED-RELEASE CAPSULES) (ACETYLSALICYLIC ACID) [Concomitant]
  5. FINASTERIDE [Concomitant]
  6. BUNIL (MELPERONE HYDROCHLORIDE) [Concomitant]
  7. OMEPRAZOLE [Concomitant]
  8. FUROSEMIDE [Concomitant]

REACTIONS (4)
  - Catheter site inflammation [None]
  - Product substitution issue [None]
  - Incorrect route of drug administration [None]
  - Medication error [None]
